APPROVED DRUG PRODUCT: ZYBAN
Active Ingredient: BUPROPION HYDROCHLORIDE
Strength: 100MG
Dosage Form/Route: TABLET, EXTENDED RELEASE;ORAL
Application: N020711 | Product #002
Applicant: GLAXOSMITHKLINE
Approved: May 14, 1997 | RLD: No | RS: No | Type: DISCN